FAERS Safety Report 7476141-1 (Version None)
Quarter: 2011Q2

REPORT INFORMATION
  Report Type: 
  Country: None (occurrence: None)
  Receive Date: 20110512
  Receipt Date: 20110506
  Transmission Date: 20111010
  Serious: Yes (Other)
  Sender: FDA-Public Use
  Company Number: GB-MERCK-1105GBR00019

PATIENT
  Age: 53 Year
  Sex: Female
  Weight: 60 kg

DRUGS (5)
  1. FLUTICASONE PROPIONATE AND SALMETEROL XINAFOATE [Concomitant]
     Route: 055
  2. EZETIMIBE [Concomitant]
     Route: 048
  3. FLUTICASONE [Concomitant]
     Route: 055
  4. METFORMIN [Concomitant]
     Route: 065
  5. JANUVIA [Suspect]
     Route: 048
     Dates: start: 20100823, end: 20101027

REACTIONS (1)
  - LICHEN PLANUS [None]
